FAERS Safety Report 4496428-4 (Version None)
Quarter: 2004Q4

REPORT INFORMATION
  Report Type: 
  Country: None (occurrence: None)
  Receive Date: 20041108
  Receipt Date: 20041108
  Transmission Date: 20050328
  Serious: Yes (Hospitalization)
  Sender: FDA-Public Use
  Company Number: None

PATIENT
  Age: 52 Year
  Sex: Female
  Weight: 59.1 kg

DRUGS (18)
  1. SANDOSTATIN [Suspect]
     Indication: DIARRHOEA
     Dosage: 100MCG Q12 HOURS SUBCUTANEOUS
     Route: 058
     Dates: start: 20040920, end: 20040921
  2. SANDOSTATIN [Suspect]
     Indication: LYMPHOMA
     Dosage: 100MCG Q12 HOURS SUBCUTANEOUS
     Route: 058
     Dates: start: 20040920, end: 20040921
  3. CHRONIC TPN [Concomitant]
  4. R-CNOP WITH RITUXIMAB [Concomitant]
  5. CYCLOPHOSPHAMIDE [Concomitant]
  6. VINCRISTINE [Concomitant]
  7. MITOXANTRONE [Concomitant]
  8. METHYLPREDNISOLONE [Concomitant]
  9. KYTRIL [Concomitant]
  10. LORAZEPAM [Concomitant]
  11. OPIATES [Concomitant]
  12. TINCTURE OF OPIUM [Concomitant]
  13. LOMOTIL [Concomitant]
  14. LOPERAMIDE HCL [Concomitant]
  15. IV ANTIBIOTICS-ZYVOX [Concomitant]
  16. VORICONAZOLE [Concomitant]
  17. CEFTAZIDIME [Concomitant]
  18. FLAGYL [Concomitant]

REACTIONS (5)
  - DIARRHOEA [None]
  - INJECTION SITE PRURITUS [None]
  - PRURITUS [None]
  - THROAT TIGHTNESS [None]
  - URTICARIA [None]
